FAERS Safety Report 10357923 (Version 1)
Quarter: 2014Q3

REPORT INFORMATION
  Report Type: Spontaneous
  Country: FR (occurrence: FR)
  Receive Date: 20140801
  Receipt Date: 20140801
  Transmission Date: 20150326
  Serious: Yes (Hospitalization)
  Sender: FDA-Public Use
  Company Number: FR-GLAXOSMITHKLINE-B1017727A

PATIENT
  Age: 63 Year
  Sex: Female

DRUGS (6)
  1. RITUXIMAB [Concomitant]
     Active Substance: RITUXIMAB
     Route: 042
     Dates: start: 20140708
  2. GLUCOPHAGE [Concomitant]
     Active Substance: METFORMIN HYDROCHLORIDE
     Indication: PRODUCT USED FOR UNKNOWN INDICATION
     Route: 065
  3. AUGMENTIN [Suspect]
     Active Substance: AMOXICILLIN\CLAVULANATE POTASSIUM
     Indication: SUPERINFECTION
     Dosage: 1G THREE TIMES PER DAY
     Route: 048
     Dates: start: 20140702, end: 20140709
  4. DISULONE [Concomitant]
     Active Substance: DAPSONE
     Indication: PRODUCT USED FOR UNKNOWN INDICATION
     Route: 065
  5. ZELITREX [Suspect]
     Active Substance: VALACYCLOVIR HYDROCHLORIDE
     Indication: HERPES DERMATITIS
     Dosage: 1G THREE TIMES PER DAY
     Route: 048
     Dates: start: 20140702, end: 20140712
  6. INEXIUM [Concomitant]
     Active Substance: ESOMEPRAZOLE
     Dosage: 20MG PER DAY
     Route: 048
     Dates: start: 20140708, end: 20140712

REACTIONS (3)
  - Abdominal pain upper [Recovering/Resolving]
  - Cholelithiasis [Recovering/Resolving]
  - Cholestasis [Recovering/Resolving]

NARRATIVE: CASE EVENT DATE: 201407
